FAERS Safety Report 6700573-X (Version None)
Quarter: 2010Q2

REPORT INFORMATION
  Report Type: 
  Country: None (occurrence: None)
  Receive Date: 20100428
  Receipt Date: 20100208
  Transmission Date: 20101027
  Serious: Yes (Other)
  Sender: FDA-Public Use
  Company Number: B0650164A

PATIENT
  Sex: Female

DRUGS (6)
  1. RHYTHMOL [Suspect]
     Indication: DRUG USE FOR UNKNOWN INDICATION
     Route: 065
  2. RAMIPRIL [Concomitant]
     Dates: start: 20040101
  3. WARFARIN SODIUM [Concomitant]
  4. VITAMIN C [Concomitant]
  5. VITALUX [Concomitant]
  6. LUTEIN [Concomitant]

REACTIONS (2)
  - CATARACT [None]
  - DIPLOPIA [None]
